FAERS Safety Report 8614436-6 (Version None)
Quarter: 2012Q3

REPORT INFORMATION
  Report Type: 
  Country: None (occurrence: None)
  Receive Date: 20120823
  Receipt Date: 20120817
  Transmission Date: 20120928
  Serious: Yes (Hospitalization, Other)
  Sender: FDA-Public Use
  Company Number: PHHY2012DE057612

PATIENT
  Age: 36 Year
  Sex: Female
  Weight: 72 kg

DRUGS (4)
  1. VALSARTAN/HYDROCHLOROTHIAZIDE [Suspect]
     Indication: RENAL HYPERTENSION
     Dosage: 1 DF (80 MG VALSARTAN AND 12.5 MG HYDROCHLOROTHIAZIDE), QD
     Route: 048
  2. METHYLDOPA [Concomitant]
     Dosage: 1 DF, TID
     Route: 048
  3. INSULIN [Concomitant]
  4. NEBIVOLOL HCL [Concomitant]
     Indication: RENAL HYPERTENSION
     Dosage: 1 DF, QD
     Route: 048

REACTIONS (9)
  - MALAISE [None]
  - MATERNAL EXPOSURE DURING PREGNANCY [None]
  - HYPERTENSION [None]
  - HEADACHE [None]
  - OEDEMA PERIPHERAL [None]
  - HEART RATE INCREASED [None]
  - PRE-ECLAMPSIA [None]
  - OLIGOHYDRAMNIOS [None]
  - PREMATURE DELIVERY [None]
